FAERS Safety Report 4885482-3 (Version None)
Quarter: 2005Q4

REPORT INFORMATION
  Report Type: 
  Country: None (occurrence: None)
  Receive Date: 20051216
  Receipt Date: 20051012
  Transmission Date: 20060501
  Serious: No
  Sender: FDA-Public Use
  Company Number: USA0510110625

PATIENT
  Age: 80 Year
  Sex: Male

DRUGS (12)
  1. CIALIS [Suspect]
     Indication: ERECTILE DYSFUNCTION
     Dosage: 20 MG
     Dates: start: 20051009
  2. FUROSEMIDE [Concomitant]
  3. ASPIRIN [Concomitant]
  4. ENALAPRIL [Concomitant]
  5. TOPAMAX [Concomitant]
  6. ZOCOR [Concomitant]
  7. WARFARIN [Concomitant]
  8. POLY-IRON /01214501/(POLYSACCHARIDE-IRON COMPLEX) [Concomitant]
  9. ASCORBIC ACID [Concomitant]
  10. CALCIUM GLUCONATE [Concomitant]
  11. VITAMIN B COMPLEX CAP [Concomitant]
  12. CENTRUM SILVER [Concomitant]

REACTIONS (3)
  - FLATULENCE [None]
  - INSOMNIA [None]
  - MYALGIA [None]
